FAERS Safety Report 19391850 (Version 5)
Quarter: 2022Q3

REPORT INFORMATION
  Report Type: Report from Study
  Country: US (occurrence: US)
  Receive Date: 20210609
  Receipt Date: 20220912
  Transmission Date: 20221026
  Serious: Yes (Hospitalization)
  Sender: FDA-Public Use
  Company Number: US-BIOGEN-2021BI01018512

PATIENT
  Age: 65 Year
  Sex: Female

DRUGS (4)
  1. TYSABRI [Suspect]
     Active Substance: NATALIZUMAB
     Indication: Multiple sclerosis
     Route: 050
     Dates: start: 20070119, end: 20210419
  2. TYSABRI [Suspect]
     Active Substance: NATALIZUMAB
     Dosage: INFUSE OVER 1 HR
     Route: 050
     Dates: start: 202104
  3. TYSABRI [Suspect]
     Active Substance: NATALIZUMAB
     Route: 050
     Dates: start: 20070119
  4. TYSABRI [Suspect]
     Active Substance: NATALIZUMAB
     Route: 050
     Dates: start: 202109

REACTIONS (4)
  - Deep vein thrombosis [Recovered/Resolved]
  - Prescribed underdose [Not Recovered/Not Resolved]
  - Product dose omission issue [Unknown]
  - Infection [Unknown]

NARRATIVE: CASE EVENT DATE: 20210601
